FAERS Safety Report 5343168-5 (Version None)
Quarter: 2007Q2

REPORT INFORMATION
  Report Type: 
  Country: None (occurrence: None)
  Receive Date: 20070416
  Receipt Date: 20070224
  Transmission Date: 20071010
  Serious: No
  Sender: FDA-Public Use
  Company Number: 2007SP000651

PATIENT
  Age: 71 Year
  Sex: Female
  Weight: 63.5036 kg

DRUGS (10)
  1. LUNESTA [Suspect]
     Indication: INSOMNIA
     Dosage: 1X;ORAL
     Route: 048
     Dates: start: 20070201, end: 20070201
  2. PRAMIPEXOLE DIHYDROCHLORIDE [Concomitant]
  3. DIHYDROCHLORIDE [Concomitant]
  4. SINEMET [Concomitant]
  5. SINEMET CR [Concomitant]
  6. ARICEPT [Concomitant]
  7. LEVOTHROID [Concomitant]
  8. FLEXERIL [Concomitant]
  9. GLUCOSAMINE [Concomitant]
  10. COENZYME Q10 [Concomitant]

REACTIONS (2)
  - DRUG INEFFECTIVE [None]
  - INSOMNIA [None]
